FAERS Safety Report 26132644 (Version 1)
Quarter: 2025Q4

REPORT INFORMATION
  Report Type: Report from Study
  Country: US (occurrence: US)
  Receive Date: 20251208
  Receipt Date: 20251208
  Transmission Date: 20260118
  Serious: Yes (Other)
  Sender: ABBVIE
  Company Number: US-ABBVIE-6430968

PATIENT
  Age: 56 Year
  Sex: Female

DRUGS (2)
  1. RINVOQ [Suspect]
     Active Substance: UPADACITINIB
     Indication: Product used for unknown indication
     Route: 048
     Dates: start: 202503
  2. RINVOQ [Suspect]
     Active Substance: UPADACITINIB
     Indication: Product used for unknown indication
     Route: 048

REACTIONS (11)
  - Inflammation [Recovering/Resolving]
  - Skin induration [Unknown]
  - Malaise [Unknown]
  - Enteritis [Unknown]
  - Inflammatory marker decreased [Unknown]
  - Abdominal distension [Unknown]
  - Colitis [Unknown]
  - Anxiety [Unknown]
  - Nervousness [Unknown]
  - Peripheral swelling [Not Recovered/Not Resolved]
  - Inflammatory marker increased [Unknown]

NARRATIVE: CASE EVENT DATE: 20250101
